FAERS Safety Report 10066744 (Version 1)
Quarter: 2014Q2

REPORT INFORMATION
  Report Type: Spontaneous
  Country: US (occurrence: US)
  Receive Date: 20140408
  Receipt Date: 20140408
  Transmission Date: 20141212
  Serious: No
  Sender: FDA-Public Use
  Company Number: US-GILEAD-2014-0098756

PATIENT
  Age: 37 Year
  Sex: Male

DRUGS (2)
  1. COMPLERA [Suspect]
     Indication: PRODUCT USED FOR UNKNOWN INDICATION
     Dosage: UNK
     Route: 065
     Dates: start: 20140214
  2. COMPLERA [Suspect]
     Dosage: UNK
     Route: 065
     Dates: start: 201210, end: 201310

REACTIONS (5)
  - Mood swings [Unknown]
  - Diarrhoea [Unknown]
  - Nausea [Unknown]
  - Headache [Unknown]
  - Depression [Unknown]
